FAERS Safety Report 23935404 (Version 1)
Quarter: 2024Q2

REPORT INFORMATION
  Report Type: Spontaneous
  Country: US (occurrence: US)
  Receive Date: 20240604
  Receipt Date: 20240604
  Transmission Date: 20240715
  Serious: No
  Sender: FDA-Public Use
  Company Number: US-009507513-2405USA005721

PATIENT

DRUGS (2)
  1. INVANZ [Suspect]
     Active Substance: ERTAPENEM SODIUM
     Route: 065
  2. COSENTYX [Concomitant]
     Active Substance: SECUKINUMAB

REACTIONS (1)
  - Ill-defined disorder [Unknown]
